FAERS Safety Report 8042366 (Version 8)
Quarter: 2012Q4

REPORT INFORMATION
  Report Type: 
  Country: US (occurrence: US)
  Receive Date: 20110718
  Receipt Date: 20121102
  Transmission Date: 20130627
  Serious: Yes (Hospitalization, Disabling, Other)
  Sender: FDA-Public Use
  Company Number: US-PFIZER INC-2011158619

PATIENT
  Age: 49 Year
  Sex: Female
  Weight: 77.1 kg

DRUGS (16)
  1. PREMPRO [Suspect]
     Indication: HOT FLASHES
     Dosage: 5 mg, daily
     Route: 048
     Dates: start: 200009, end: 200009
  2. METOPROLOL TARTRATE [Suspect]
     Indication: BLOOD PRESSURE HIGH
     Dosage: 100 mg, 2x/day
  3. METFORMIN HCL [Suspect]
     Indication: DIABETES
     Dosage: 2000 mg, daily
  4. HYDROCHLOROTHIAZIDE [Suspect]
     Indication: MICTURITION DISORDER
     Dosage: 12.5 mg, daily
  5. HYDROCHLOROTHIAZIDE [Suspect]
     Indication: BLOOD PRESSURE ABNORMAL
  6. ACETYLSALICYLIC ACID [Suspect]
     Indication: ANTICOAGULANT THERAPY
     Dosage: 325 mg, daily
  7. LOPERAMIDE HYDROCHLORIDE [Suspect]
     Indication: MICTURITION DISORDER
     Dosage: 2 mg, 2x/day
  8. GLUCOPHAGE [Suspect]
     Indication: TYPE 2 DIABETES MELLITUS
     Dosage: 5 mg, UNK
     Dates: start: 199511
  9. ZOCOR [Suspect]
     Indication: HIGH CHOLESTEROL
     Dosage: 20 mg, daily
  10. PLAVIX [Suspect]
     Indication: CARDIAC DISORDER
     Dosage: 75 mg, daily
  11. COUMADIN [Suspect]
     Indication: ANTICOAGULANT THERAPY
     Dosage: UNK
  12. NATTOKINASE [Suspect]
     Indication: ANTICOAGULANT THERAPY
     Dosage: 200 mg, 2x/day
  13. LASIX [Suspect]
     Dosage: UNK
  14. VITAMIN D3 [Suspect]
  15. MENATETRENONE [Suspect]
  16. LOPRESSOR [Concomitant]
     Indication: BLOOD PRESSURE ABNORMAL
     Dosage: two times daily

REACTIONS (17)
  - Cerebrovascular accident [Not Recovered/Not Resolved]
  - Abasia [Not Recovered/Not Resolved]
  - Diabetes mellitus [Unknown]
  - Physical disability [Unknown]
  - Memory impairment [Unknown]
  - Speech disorder [Unknown]
  - Dysgraphia [Not Recovered/Not Resolved]
  - Movement disorder [Unknown]
  - Urinary incontinence [Unknown]
  - Faecal incontinence [Unknown]
  - Musculoskeletal stiffness [Unknown]
  - Loss of control of legs [Unknown]
  - Coordination abnormal [Unknown]
  - Cardiac disorder [Unknown]
  - Muscle spasms [Unknown]
  - Abdominal discomfort [Unknown]
  - Drug ineffective [Unknown]
